FAERS Safety Report 5734691-X (Version None)
Quarter: 2008Q2

REPORT INFORMATION
  Report Type: 
  Country: None (occurrence: None)
  Receive Date: 20080512
  Receipt Date: 20080508
  Transmission Date: 20081010
  Serious: Yes (Other)
  Sender: FDA-Public Use
  Company Number: A0726964A

PATIENT
  Age: 33 Year
  Sex: Male

DRUGS (2)
  1. TARGET NTS 14MG [Suspect]
     Indication: SMOKING CESSATION THERAPY
     Route: 062
  2. NICODERM CQ [Suspect]
     Indication: SMOKING CESSATION THERAPY
     Route: 062

REACTIONS (2)
  - COLITIS ULCERATIVE [None]
  - DIARRHOEA [None]
